FAERS Safety Report 9009673 (Version 1)
Quarter: 2013Q1

REPORT INFORMATION
  Report Type: Spontaneous
  Country: US (occurrence: US)
  Receive Date: 20130110
  Receipt Date: 20130110
  Transmission Date: 20140127
  Serious: Yes (Other)
  Sender: FDA-Public Use
  Company Number: US-PFIZER INC-2013008621

PATIENT
  Sex: Female

DRUGS (1)
  1. ROBITUSSIN COUGH AND CHEST CONGESTION SUGAR FREE DM [Suspect]
     Indication: INFLUENZA
     Dosage: UNK, 2X/DAY
     Dates: start: 20130106

REACTIONS (2)
  - Pertussis [Unknown]
  - Choking [Unknown]
